FAERS Safety Report 16437969 (Version 1)
Quarter: 2019Q2

REPORT INFORMATION
  Report Type: Spontaneous
  Country: FR (occurrence: FR)
  Receive Date: 20190617
  Receipt Date: 20190617
  Transmission Date: 20190711
  Serious: Yes (Hospitalization)
  Sender: FDA-Public Use
  Company Number: FR-TEVA-2019-FR-1063306

PATIENT
  Age: 52 Year
  Sex: Female
  Weight: 53 kg

DRUGS (1)
  1. TERBINAFINE. [Suspect]
     Active Substance: TERBINAFINE
     Indication: PRODUCT USED FOR UNKNOWN INDICATION
     Route: 048
     Dates: start: 20190115, end: 20190515

REACTIONS (1)
  - Subacute cutaneous lupus erythematosus [Recovering/Resolving]

NARRATIVE: CASE EVENT DATE: 20190523
